FAERS Safety Report 24076737 (Version 4)
Quarter: 2024Q3

REPORT INFORMATION
  Report Type: Spontaneous
  Country: US (occurrence: US)
  Receive Date: 20240711
  Receipt Date: 20240823
  Transmission Date: 20241017
  Serious: No
  Sender: JOHNSON AND JOHNSON
  Company Number: US-JNJFOC-20240719815

PATIENT
  Age: 72 Year
  Sex: Male

DRUGS (1)
  1. TREMFYA [Suspect]
     Active Substance: GUSELKUMAB
     Indication: Product used for unknown indication
     Route: 065

REACTIONS (4)
  - Injection site pain [Unknown]
  - Drug delivery system malfunction [Unknown]
  - Product dose omission issue [Unknown]
  - Product label issue [Unknown]

NARRATIVE: CASE EVENT DATE: 20240708
